FAERS Safety Report 23145675 (Version 1)
Quarter: 2023Q4

REPORT INFORMATION
  Report Type: Spontaneous
  Country: US (occurrence: US)
  Receive Date: 20231103
  Receipt Date: 20231103
  Transmission Date: 20240110
  Serious: Yes (Other)
  Sender: FDA-Public Use
  Company Number: US-BAYER-2023A153397

PATIENT
  Age: 82 Year
  Sex: Male

DRUGS (1)
  1. NUBEQA [Suspect]
     Active Substance: DAROLUTAMIDE

REACTIONS (6)
  - Gait inability [None]
  - Swelling face [None]
  - Peripheral swelling [None]
  - Somnolence [None]
  - Feeling abnormal [None]
  - Fatigue [None]
